FAERS Safety Report 20775258 (Version 1)
Quarter: 2022Q2

REPORT INFORMATION
  Report Type: Spontaneous
  Country: US (occurrence: None)
  Receive Date: 20220502
  Receipt Date: 20220502
  Transmission Date: 20220721
  Serious: Yes (unspecified)
  Sender: FDA-Public Use
  Company Number: None

PATIENT
  Age: 37 Year
  Sex: Female
  Weight: 96.75 kg

DRUGS (8)
  1. PAXLOVID [Suspect]
     Active Substance: NIRMATRELVIR\RITONAVIR
     Indication: COVID-19
     Dosage: OTHER QUANTITY : 30 TABLET(S);?FREQUENCY : TWICE A DAY;?
     Route: 048
     Dates: start: 20220427, end: 20220429
  2. TOPIRAMATE [Concomitant]
     Active Substance: TOPIRAMATE
  3. BACLOFEN [Concomitant]
     Active Substance: BACLOFEN
  4. ZOFRAN [Concomitant]
     Active Substance: ONDANSETRON HYDROCHLORIDE
  5. LASIX [Concomitant]
     Active Substance: FUROSEMIDE
  6. TYLENOL EXTRA STRENGTH [Concomitant]
     Active Substance: ACETAMINOPHEN
  7. PRIMROSE [Concomitant]
  8. adult multivitamin gummy [Concomitant]

REACTIONS (6)
  - Dysgeusia [None]
  - Lacrimation disorder [None]
  - Burning sensation [None]
  - Vomiting [None]
  - COVID-19 [None]
  - Skin burning sensation [None]

NARRATIVE: CASE EVENT DATE: 20220429
